FAERS Safety Report 5478825-3 (Version None)
Quarter: 2007Q4

REPORT INFORMATION
  Report Type: 
  Country: None (occurrence: None)
  Receive Date: 20071002
  Receipt Date: 20070920
  Transmission Date: 20080405
  Serious: Yes (Hospitalization)
  Sender: FDA-Public Use
  Company Number: 238071K07USA

PATIENT
  Age: 58 Year
  Sex: Male

DRUGS (11)
  1. REBIF [Suspect]
     Indication: MULTIPLE SCLEROSIS
     Dosage: 44 MCG, 3 IN 1 WEEKS, SUBCUTANEOUS
     Route: 058
     Dates: start: 20060320
  2. ASPIRIN [Concomitant]
  3. GLUCOPHAGE [Concomitant]
  4. NEURONTIN [Concomitant]
  5. PLAVIX [Concomitant]
  6. PROCARDIA XL [Concomitant]
  7. TOPROL-XL [Concomitant]
  8. TRICOR [Concomitant]
  9. UROXATRAL [Concomitant]
  10. ZOCOR [Concomitant]
  11. VITAMINS [Concomitant]

REACTIONS (3)
  - CORONARY ARTERY OCCLUSION [None]
  - HEADACHE [None]
  - MYOCARDIAL INFARCTION [None]
